FAERS Safety Report 8272680-4 (Version None)
Quarter: 2012Q2

REPORT INFORMATION
  Report Type: 
  Country: None (occurrence: None)
  Receive Date: 20120411
  Receipt Date: 20120329
  Transmission Date: 20120825
  Serious: Yes (Death)
  Sender: FDA-Public Use
  Company Number: CO-BAXTER-2011BH027991

PATIENT
  Sex: Male

DRUGS (1)
  1. DIANEAL_2.5% PD2_SOLUTION FOR PERITONEAL DIALYSIS_BAG, PVC [Suspect]
     Indication: PERITONEAL DIALYSIS
     Route: 033

REACTIONS (4)
  - POOR QUALITY DRUG ADMINISTERED [None]
  - PRODUCT COLOUR ISSUE [None]
  - HYPOTENSION [None]
  - SEPSIS [None]
